FAERS Safety Report 15740495 (Version 1)
Quarter: 2018Q4

REPORT INFORMATION
  Report Type: Spontaneous
  Country: GB (occurrence: GB)
  Receive Date: 20181219
  Receipt Date: 20181219
  Transmission Date: 20190205
  Serious: Yes (Other)
  Sender: FDA-Public Use
  Company Number: GB-PFIZER INC-2018515683

PATIENT
  Age: 70 Year
  Sex: Female
  Weight: 88 kg

DRUGS (14)
  1. FLEXITOL HEEL [Concomitant]
     Dosage: 2 DF, 1X/DAY (APPLY.)
     Dates: start: 20181114
  2. ALENDRONIC ACID [Concomitant]
     Active Substance: ALENDRONIC ACID
     Dosage: 1 DF, WEEKLY
     Dates: start: 20171002, end: 20181119
  3. OMEPRAZOLE. [Concomitant]
     Active Substance: OMEPRAZOLE
     Dosage: 1 DF, 1X/DAY
     Dates: start: 20171002
  4. RAMIPRIL. [Concomitant]
     Active Substance: RAMIPRIL
     Dosage: 1 DF, 1X/DAY (IN THE MORNING.)
     Dates: start: 20171002
  5. CARMELLOSE SODIUM [Concomitant]
     Active Substance: CARBOXYMETHYLCELLULOSE SODIUM
     Dosage: 4 GTT, 1X/DAY (INTO LEFT EYE.)
     Dates: start: 20171002
  6. FERROUS FUMARATE [Concomitant]
     Active Substance: FERROUS FUMARATE
     Dosage: 3 DF, 1X/DAY
     Dates: start: 20180112, end: 20181119
  7. GALFER [Concomitant]
     Active Substance: IRON
     Dosage: 1 DF, 1X/DAY
     Dates: start: 20181119
  8. ACETYLSALICYLIC ACID [Concomitant]
     Active Substance: ASPIRIN
     Dosage: 1 DF, 1X/DAY
     Dates: start: 20171002
  9. METFORMIN [Concomitant]
     Active Substance: METFORMIN HYDROCHLORIDE
     Dosage: 1 DF, 1X/DAY (WITH BREAKFAST.)
     Dates: start: 20171002
  10. ZAPAIN [Concomitant]
     Active Substance: ACETAMINOPHEN\CODEINE PHOSPHATE
     Dosage: 8 DF, 1X/DAY
     Dates: start: 20171002
  11. ATORVASTATIN CALCIUM. [Suspect]
     Active Substance: ATORVASTATIN CALCIUM
     Dosage: 40 MG, UNK
     Dates: start: 20171002
  12. STEXEROL D3 [Concomitant]
     Dosage: 1 DF, 1X/DAY
     Dates: start: 20171002
  13. RISEDRONATE SODIUM. [Concomitant]
     Active Substance: RISEDRONATE SODIUM
     Dosage: 1 DF, WEEKLY
     Dates: start: 20181119
  14. FELODIPINE. [Concomitant]
     Active Substance: FELODIPINE
     Dosage: 1 DF, 1X/DAY
     Dates: start: 20180611

REACTIONS (1)
  - Lethargy [Recovered/Resolved]

NARRATIVE: CASE EVENT DATE: 20181119
